FAERS Safety Report 9350135 (Version 1)
Quarter: 2013Q2

REPORT INFORMATION
  Report Type: Spontaneous
  Country: KR (occurrence: KR)
  Receive Date: 20130617
  Receipt Date: 20130617
  Transmission Date: 20140414
  Serious: No
  Sender: FDA-Public Use
  Company Number: KR-009507513-1306KOR006283

PATIENT
  Age: 57 Year
  Sex: Male

DRUGS (5)
  1. CASPOFUNGIN ACETATE [Suspect]
     Indication: PNEUMOCYSTIS JIROVECII PNEUMONIA
     Dosage: ONE TIME 70 MG, DAY 18
  2. CASPOFUNGIN ACETATE [Suspect]
     Dosage: 50 MG PER DAY FOR 11 DAYS
  3. SULFAMETHOXAZOLE (+) TRIMETHOPRIM [Suspect]
     Indication: PNEUMOCYSTIS JIROVECII PNEUMONIA
     Dosage: 15 MG/KG PER DAY TMP COMPONENT
  4. CLINDAMYCIN [Suspect]
     Indication: PNEUMOCYSTIS JIROVECII PNEUMONIA
     Dosage: 600 MG, TID
  5. PRIMAQUINE [Suspect]
     Indication: PNEUMOCYSTIS JIROVECII PNEUMONIA
     Dosage: 30 MG, QD

REACTIONS (1)
  - Drug ineffective [Unknown]
